FAERS Safety Report 12236334 (Version 2)
Quarter: 2016Q2

REPORT INFORMATION
  Report Type: Spontaneous
  Country: None (occurrence: US)
  Receive Date: 20160404
  Receipt Date: 20160523
  Transmission Date: 20160815
  Serious: No
  Sender: FDA-Public Use
  Company Number: US-MATRIXX INITIATIVES, INC.-1050204

PATIENT
  Age: 38 Year
  Sex: Female
  Weight: 70.46 kg

DRUGS (1)
  1. ZICAM COLD REMEDY LOZENGES (PLUS MENTHOL) [Suspect]
     Active Substance: MENTHOL\ZINC ACETATE\ZINC GLUCONATE
     Indication: NASOPHARYNGITIS
     Route: 048
     Dates: start: 20160330, end: 20160330

REACTIONS (1)
  - Ageusia [Recovered/Resolved]
